FAERS Safety Report 13964386 (Version 1)
Quarter: 2017Q3

REPORT INFORMATION
  Report Type: Spontaneous
  Country: US (occurrence: US)
  Receive Date: 20170913
  Receipt Date: 20170913
  Transmission Date: 20171128
  Serious: No
  Sender: FDA-Public Use
  Company Number: None

PATIENT
  Age: 48 Year
  Sex: Female
  Weight: 57.15 kg

DRUGS (5)
  1. B12 COMPLEX [Concomitant]
  2. TOPIRAMATE 200MG [Suspect]
     Active Substance: TOPIRAMATE
     Indication: MIGRAINE
     Dosage: ?          QUANTITY:1 TABLET(S);?
     Route: 048
  3. CITRICEL [Concomitant]
  4. MAGNESIUM OXIDE. [Concomitant]
     Active Substance: MAGNESIUM OXIDE
  5. IRON [Concomitant]
     Active Substance: IRON

REACTIONS (15)
  - Tangentiality [None]
  - Raynaud^s phenomenon [None]
  - Condition aggravated [None]
  - Dizziness [None]
  - Ear pain [None]
  - Headache [None]
  - Amnesia [None]
  - Confusional state [None]
  - Therapy change [None]
  - Dysarthria [None]
  - Aphasia [None]
  - Disturbance in attention [None]
  - Tinnitus [None]
  - Ear congestion [None]
  - Nausea [None]
